FAERS Safety Report 8561923-5 (Version None)
Quarter: 2012Q3

REPORT INFORMATION
  Report Type: 
  Country: None (occurrence: None)
  Receive Date: 20120802
  Receipt Date: 20120720
  Transmission Date: 20120928
  Serious: No
  Sender: FDA-Public Use
  Company Number: US-ASTRAZENECA-2012SE51355

PATIENT
  Sex: Female

DRUGS (1)
  1. SYMBICORT [Suspect]
     Dosage: 160/4.5 MCG, BID
     Route: 055

REACTIONS (5)
  - PNEUMONIA [None]
  - RHINORRHOEA [None]
  - PRODUCTIVE COUGH [None]
  - MALAISE [None]
  - HERPES ZOSTER [None]
